FAERS Safety Report 13421794 (Version 3)
Quarter: 2017Q2

REPORT INFORMATION
  Report Type: Report from Study
  Country: US (occurrence: US)
  Receive Date: 20170410
  Receipt Date: 20170428
  Transmission Date: 20170830
  Serious: No
  Sender: FDA-Public Use
  Company Number: PHEH2017US010309

PATIENT
  Sex: Male

DRUGS (1)
  1. COSENTYX [Suspect]
     Active Substance: SECUKINUMAB
     Indication: PSORIASIS
     Dosage: UNK
     Route: 058
     Dates: start: 20161001

REACTIONS (5)
  - Malaise [Unknown]
  - Decreased appetite [Unknown]
  - Psoriasis [Unknown]
  - Viral upper respiratory tract infection [Unknown]
  - Immune system disorder [Unknown]
